FAERS Safety Report 7410262-4 (Version None)
Quarter: 2011Q2

REPORT INFORMATION
  Report Type: 
  Country: None (occurrence: None)
  Receive Date: 20110412
  Receipt Date: 20110225
  Transmission Date: 20111010
  Serious: Yes (Hospitalization, Other)
  Sender: FDA-Public Use
  Company Number: US-BAYER-201034769NA

PATIENT
  Age: 28 Year
  Sex: Female
  Weight: 126.98 kg

DRUGS (10)
  1. YASMIN [Suspect]
     Indication: ORAL CONTRACEPTION
     Dosage: UNK
     Dates: start: 20060101, end: 20080101
  2. PAXIL [Concomitant]
     Dosage: 10 MG, UNK
     Route: 048
  3. IBUPROFEN [Concomitant]
     Dosage: 500 MG, UNK
     Route: 048
     Dates: start: 20080701
  4. LOESTRIN 1.5/30 [Concomitant]
     Dosage: UNK
     Route: 048
     Dates: start: 20060101
  5. OXYCODONE [Concomitant]
     Dosage: 30 MG, UNK
     Route: 048
  6. INDERAL [Concomitant]
     Dosage: UNK
     Route: 048
     Dates: start: 20070101
  7. TOPAMAX [Concomitant]
     Dosage: UNK
     Route: 048
     Dates: start: 20050101
  8. YAZ [Suspect]
     Indication: ORAL CONTRACEPTION
  9. OCELLA [Suspect]
     Indication: ORAL CONTRACEPTION
     Dosage: UNK
     Dates: start: 20080101, end: 20090101
  10. TOPAMAX [Concomitant]
     Dosage: UNK
     Route: 048
     Dates: start: 20080101

REACTIONS (4)
  - CHOLECYSTITIS [None]
  - ABDOMINAL PAIN [None]
  - ANXIETY [None]
  - GALLBLADDER INJURY [None]
